FAERS Safety Report 10248700 (Version 1)
Quarter: 2014Q2

REPORT INFORMATION
  Report Type: Spontaneous
  Country: US (occurrence: None)
  Receive Date: 20140617
  Receipt Date: 20140617
  Transmission Date: 20141212
  Serious: No
  Sender: FDA-Public Use
  Company Number: None

PATIENT
  Age: 46 Year
  Sex: Female

DRUGS (1)
  1. GENERIC TOPIRAMATE [Suspect]
     Indication: MIGRAINE

REACTIONS (3)
  - Product substitution issue [None]
  - Therapeutic response changed [None]
  - No therapeutic response [None]
